FAERS Safety Report 5448317-6 (Version None)
Quarter: 2007Q3

REPORT INFORMATION
  Report Type: 
  Country: None (occurrence: None)
  Receive Date: 20070906
  Receipt Date: 20070906
  Transmission Date: 20080115
  Serious: Yes (Other)
  Sender: FDA-Public Use
  Company Number: None

PATIENT
  Age: 44 Year
  Sex: Male

DRUGS (1)
  1. CLOZAPINE [Suspect]
     Indication: SCHIZOAFFECTIVE DISORDER
     Dosage: 100MG AM + 200MG HS PO
     Route: 048
     Dates: start: 20070522, end: 20070607

REACTIONS (3)
  - DRY SKIN [None]
  - SKIN EXFOLIATION [None]
  - URTICARIA [None]
